FAERS Safety Report 6051830-4 (Version None)
Quarter: 2009Q1

REPORT INFORMATION
  Report Type: 
  Country: None (occurrence: None)
  Receive Date: 20090126
  Receipt Date: 20090121
  Transmission Date: 20090719
  Serious: Yes (Death, Other)
  Sender: FDA-Public Use
  Company Number: PHHY2009JP02415

PATIENT
  Age: 49 Year
  Sex: Male

DRUGS (2)
  1. CYCLOSPORINE [Suspect]
     Indication: CORD BLOOD TRANSPLANT THERAPY
     Dosage: UNK
     Dates: start: 20061101
  2. METHOTREXATE [Concomitant]
     Indication: CORD BLOOD TRANSPLANT THERAPY
     Dosage: UNK
     Dates: start: 20061101

REACTIONS (5)
  - ACUTE MYELOID LEUKAEMIA [None]
  - BRONCHOPULMONARY ASPERGILLOSIS [None]
  - CYTOMEGALOVIRUS VIRAEMIA [None]
  - HISTIOCYTOSIS HAEMATOPHAGIC [None]
  - MYELODYSPLASTIC SYNDROME [None]
